FAERS Safety Report 10388326 (Version 1)
Quarter: 2014Q3

REPORT INFORMATION
  Report Type: Spontaneous
  Country: IN (occurrence: IN)
  Receive Date: 20140815
  Receipt Date: 20140815
  Transmission Date: 20150326
  Serious: Yes (Other)
  Sender: FDA-Public Use
  Company Number: IN-B.I. PHARMACEUTICALS,INC./RIDGEFIELD-2014-BI-36941IG

PATIENT
  Age: 79 Year
  Sex: Male

DRUGS (10)
  1. METFORMIN [Concomitant]
     Active Substance: METFORMIN HYDROCHLORIDE
     Route: 065
  2. CADDIVAS [Concomitant]
     Route: 065
  3. TRADJENTA [Suspect]
     Active Substance: LINAGLIPTIN
     Indication: PRODUCT USED FOR UNKNOWN INDICATION
     Dosage: STRENGTH: 2.5/850 MG
     Route: 048
     Dates: start: 201406, end: 20140617
  4. STORVAS [Concomitant]
     Dosage: 20 MG
     Route: 065
  5. LANOXIN [Concomitant]
     Active Substance: DIGOXIN
     Dosage: 0.25 MG
     Route: 065
  6. LASILACTONE [Concomitant]
     Active Substance: FUROSEMIDE\SPIRONOLACTONE
     Route: 065
  7. VOLIX M [Concomitant]
     Dosage: 0.9 MG
     Route: 065
  8. CLOPIVAS AP [Concomitant]
     Dosage: 75 MG
     Route: 065
  9. ZOEYL [Concomitant]
     Dosage: 4 MG
     Route: 065
  10. ACILOC RD [Concomitant]
     Route: 065

REACTIONS (1)
  - Epigastric discomfort [Unknown]
